FAERS Safety Report 4768344-1 (Version None)
Quarter: 2005Q3

REPORT INFORMATION
  Report Type: 
  Country: None (occurrence: None)
  Receive Date: 20050914
  Receipt Date: 20050907
  Transmission Date: 20060218
  Serious: Yes (Hospitalization)
  Sender: FDA-Public Use
  Company Number: DE-JNJFOC-20050901226

PATIENT
  Age: 41 Year
  Sex: Male
  Weight: 101 kg

DRUGS (4)
  1. INFLIXIMAB [Suspect]
     Route: 042
  2. INFLIXIMAB [Suspect]
     Indication: ANKYLOSING SPONDYLITIS
     Route: 042
  3. DICLOFENAC [Suspect]
     Indication: ANKYLOSING SPONDYLITIS
     Dosage: FOR SEVERAL YEARS.
     Route: 065
  4. DECORTIN [Suspect]
     Indication: ANKYLOSING SPONDYLITIS
     Dosage: FOR SEVERAL WEEKS.
     Route: 065

REACTIONS (1)
  - GASTRIC ULCER PERFORATION [None]
